FAERS Safety Report 10020981 (Version 2)
Quarter: 2014Q1

REPORT INFORMATION
  Report Type: Spontaneous
  Country: US (occurrence: US)
  Receive Date: 20140319
  Receipt Date: 20140323
  Transmission Date: 20141002
  Serious: Yes (Hospitalization)
  Sender: FDA-Public Use
  Company Number: US-BRISTOL-MYERS SQUIBB COMPANY-20469797

PATIENT
  Sex: Female

DRUGS (3)
  1. ABILIFY TABS 30 MG [Suspect]
     Route: 048
  2. ABILIFY MAINTENA INJECTION [Suspect]
     Dosage: ER INJECTABLE SUSP
     Route: 030
  3. TEGRETOL [Suspect]

REACTIONS (1)
  - Psychiatric decompensation [Unknown]
